FAERS Safety Report 13377356 (Version 1)
Quarter: 2017Q1

REPORT INFORMATION
  Report Type: Spontaneous
  Country: US (occurrence: US)
  Receive Date: 20170328
  Receipt Date: 20170328
  Transmission Date: 20170429
  Serious: No
  Sender: FDA-Public Use
  Company Number: US-GLAXOSMITHKLINE-US2017036913

PATIENT
  Sex: Female

DRUGS (2)
  1. ZEASORB [Suspect]
     Active Substance: MICONAZOLE NITRATE
     Dosage: UNK
     Route: 061
     Dates: start: 20170311, end: 20170313
  2. ZEASORB [Suspect]
     Active Substance: MICONAZOLE NITRATE
     Indication: RASH
     Dosage: UNK
     Dates: start: 2014

REACTIONS (2)
  - Off label use [Unknown]
  - Therapeutic response unexpected [Unknown]
